FAERS Safety Report 20178215 (Version 1)
Quarter: 2021Q4

REPORT INFORMATION
  Report Type: Spontaneous
  Country: SA (occurrence: SA)
  Receive Date: 20211213
  Receipt Date: 20211213
  Transmission Date: 20220303
  Serious: Yes (Other)
  Sender: FDA-Public Use
  Company Number: SA-Fresenius Kabi-FK202113858

PATIENT
  Age: 35 Year
  Sex: Female
  Weight: 79 kg

DRUGS (4)
  1. DEXAMETHASONE [Suspect]
     Active Substance: DEXAMETHASONE
     Indication: Product used for unknown indication
     Route: 065
  2. DEXAMETHASONE [Suspect]
     Active Substance: DEXAMETHASONE
     Route: 065
  3. FENTANYL [Concomitant]
     Active Substance: FENTANYL
     Indication: Anaesthesia
     Route: 065
  4. PROPOFOL [Concomitant]
     Active Substance: PROPOFOL
     Indication: Anaesthesia
     Route: 065

REACTIONS (2)
  - Unmasking of previously unidentified disease [Recovered/Resolved with Sequelae]
  - Diabetes insipidus [Recovered/Resolved with Sequelae]
